FAERS Safety Report 5270253-9 (Version None)
Quarter: 2007Q1

REPORT INFORMATION
  Report Type: 
  Country: None (occurrence: None)
  Receive Date: 20061214
  Receipt Date: 20061109
  Transmission Date: 20070707
  Serious: No
  Sender: FDA-Public Use
  Company Number: IND-AE-06-SAN-048

PATIENT
  Age: 36 Year
  Weight: 54.4316 kg

DRUGS (2)
  1. SANCTURA [Suspect]
     Indication: HYPERTONIC BLADDER
     Dosage: 20 MG BID ORAL
     Route: 048
     Dates: start: 20061107, end: 20061108
  2. SANCTURA [Suspect]
     Indication: HYPERTONIC BLADDER
     Dosage: 10 MG BID ORAL
     Route: 048
     Dates: start: 20061109

REACTIONS (2)
  - FATIGUE [None]
  - HEADACHE [None]
